FAERS Safety Report 24674446 (Version 1)
Quarter: 2024Q4

REPORT INFORMATION
  Report Type: Other
  Country: IT (occurrence: IT)
  Receive Date: 20241128
  Receipt Date: 20241128
  Transmission Date: 20250115
  Serious: Yes (Hospitalization)
  Sender: STRIDES
  Company Number: None

PATIENT
  Age: 73 Year
  Sex: Male

DRUGS (13)
  1. IBUPROFEN [Suspect]
     Active Substance: IBUPROFEN
     Indication: Product used for unknown indication
     Dosage: 15 COMPRESSE DA 400 MG (6 GRAMMI)
     Route: 048
     Dates: start: 20240927, end: 20240927
  2. ACYCLOVIR [Suspect]
     Active Substance: ACYCLOVIR
     Indication: Product used for unknown indication
     Dosage: 7 COMPRESSE DA 800 MG (5600 MG TOT)
     Route: 048
     Dates: start: 20240927, end: 20240927
  3. FLUOXETINE [Suspect]
     Active Substance: FLUOXETINE HYDROCHLORIDE
     Indication: Product used for unknown indication
     Dosage: 5 COMPRESSE DA 20 MG (100 MG)
     Route: 048
     Dates: start: 20240927, end: 20240927
  4. ATORVASTATIN [Suspect]
     Active Substance: ATORVASTATIN
     Indication: Product used for unknown indication
     Dosage: 56 COMPRESSE DA 40 MG
     Route: 048
     Dates: start: 20240927, end: 20240927
  5. BACTRIM [Suspect]
     Active Substance: SULFAMETHOXAZOLE\TRIMETHOPRIM
     Indication: Product used for unknown indication
     Dosage: 8 COMPRESSE 800/160 MG
     Route: 048
     Dates: start: 20240927, end: 20240927
  6. ACETAMINOPHEN [Suspect]
     Active Substance: ACETAMINOPHEN
     Indication: Product used for unknown indication
     Dosage: 8 COMPRESSE D 1 GRAMMO (8 GRAMMI)
     Route: 048
     Dates: start: 20240927, end: 20240927
  7. MEDROL [Suspect]
     Active Substance: METHYLPREDNISOLONE
     Indication: Product used for unknown indication
     Dosage: 10 COMPRESSE DA 16 MG (160 MG)
     Route: 048
     Dates: start: 20240927, end: 20240927
  8. XANAX [Suspect]
     Active Substance: ALPRAZOLAM
     Indication: Product used for unknown indication
     Dosage: 10 COMPRESSE DA 0.5 MG (5 MG)
     Route: 048
     Dates: start: 20240927, end: 20240927
  9. AUGMENTIN [Suspect]
     Active Substance: AMOXICILLIN\CLAVULANATE POTASSIUM
     Indication: Product used for unknown indication
     Dosage: 6 COMPRESSE DA 1 GRAMMO (6 GRAMMI)
     Route: 048
     Dates: start: 20240927, end: 20240927
  10. CLOPIDOGREL [Suspect]
     Active Substance: CLOPIDOGREL BISULFATE
     Indication: Product used for unknown indication
     Dosage: 42 COMPRESSE DA 75 MG (3150 MG TOTALI)
     Route: 048
     Dates: start: 20240927, end: 20240927
  11. PANTOPRAZOLE SODIUM [Suspect]
     Active Substance: PANTOPRAZOLE SODIUM
     Indication: Product used for unknown indication
     Dosage: 56 COMPRESSE DA 40 MG (2240 MG TOTALI)
     Route: 048
     Dates: start: 20240927, end: 20240927
  12. ASPIRIN [Suspect]
     Active Substance: ASPIRIN
     Indication: Product used for unknown indication
     Dosage: 20 COMPRESSE DA 100 MG (2 GRAMMI)
     Route: 048
     Dates: start: 20240927, end: 20240927
  13. CIPROFLOXACIN [Suspect]
     Active Substance: CIPROFLOXACIN
     Indication: Product used for unknown indication
     Dosage: 30 COMPRESSE DA 500 MG (15 GRAMMI)
     Route: 048
     Dates: start: 20240927, end: 20240927

REACTIONS (3)
  - Poisoning [Unknown]
  - Hypotension [Unknown]
  - Tachycardia [Unknown]

NARRATIVE: CASE EVENT DATE: 20240927
